FAERS Safety Report 9585773 (Version 1)
Quarter: 2013Q4

REPORT INFORMATION
  Report Type: Spontaneous
  Country: US (occurrence: None)
  Receive Date: 20131002
  Receipt Date: 20131002
  Transmission Date: 20140711
  Serious: No
  Sender: FDA-Public Use
  Company Number: None

PATIENT
  Age: 30 Year
  Sex: Female
  Weight: 58.97 kg

DRUGS (1)
  1. ZOLOFT [Suspect]
     Indication: MAJOR DEPRESSION
     Dosage: TWICE DAILY  TAKEN BY MOUTH
     Route: 048
     Dates: start: 19920601, end: 19930630

REACTIONS (4)
  - Tremor [None]
  - Dysgraphia [None]
  - Sexual dysfunction [None]
  - Female sexual arousal disorder [None]
